FAERS Safety Report 11410259 (Version 1)
Quarter: 2015Q3

REPORT INFORMATION
  Report Type: Spontaneous
  Country: US (occurrence: US)
  Receive Date: 20150824
  Receipt Date: 20150824
  Transmission Date: 20151125
  Serious: Yes (Hospitalization)
  Sender: FDA-Public Use
  Company Number: PHHY2015US098411

PATIENT
  Age: 60 Year
  Sex: Male

DRUGS (6)
  1. RISPERIDONE. [Suspect]
     Active Substance: RISPERIDONE
     Indication: BIPOLAR DISORDER
     Route: 065
  2. BUPROPION. [Concomitant]
     Active Substance: BUPROPION
     Indication: BIPOLAR DISORDER
     Route: 065
  3. FENTANYL. [Concomitant]
     Active Substance: FENTANYL
     Indication: SEDATION
     Route: 065
  4. ESCITALOPRAM [Concomitant]
     Active Substance: ESCITALOPRAM OXALATE
     Indication: BIPOLAR DISORDER
     Route: 065
  5. LORAZEPAM. [Concomitant]
     Active Substance: LORAZEPAM
     Indication: AGITATION
     Route: 065
  6. VALPROIC ACID. [Concomitant]
     Active Substance: VALPROIC ACID
     Indication: BIPOLAR DISORDER
     Route: 065

REACTIONS (19)
  - Pyrexia [Recovered/Resolved]
  - Respiratory distress [Recovered/Resolved]
  - Leukocytosis [Recovered/Resolved]
  - Sepsis [Recovered/Resolved]
  - Hypertension [Recovered/Resolved]
  - Muscle rigidity [Recovered/Resolved]
  - Hypernatraemia [Recovered/Resolved]
  - Autonomic nervous system imbalance [Recovered/Resolved]
  - Hyporeflexia [Recovered/Resolved]
  - Dyspnoea [Recovered/Resolved]
  - Confusional state [Recovered/Resolved]
  - Hypocalcaemia [Recovered/Resolved]
  - Cough [Recovered/Resolved]
  - Neuroleptic malignant syndrome [Recovered/Resolved]
  - Hyperthermia [Recovered/Resolved]
  - Blood creatine phosphokinase increased [Recovered/Resolved]
  - Tachycardia [Recovered/Resolved]
  - Transaminases increased [Recovered/Resolved]
  - Pneumonia [Recovered/Resolved]
